FAERS Safety Report 8712937 (Version 3)
Quarter: 2012Q4

REPORT INFORMATION
  Report Type: 
  Country: AU (occurrence: AU)
  Receive Date: 20120808
  Receipt Date: 20120928
  Transmission Date: 20130627
  Serious: Yes (Other)
  Sender: FDA-Public Use
  Company Number: AU-B.I. PHARMACEUTICALS,INC./RIDGEFIELD-2012-AU-01345AU

PATIENT
  Age: 86 None
  Sex: Female
  Weight: 50 kg

DRUGS (12)
  1. PRADAXA [Suspect]
     Indication: CARDIAC FIBRILLATION
     Dosage: 220 mg
     Dates: start: 201110
  2. NORSPAN [Suspect]
     Indication: PAIN
     Dosage: 0.7143 mcg
  3. NORSPAN [Suspect]
     Dosage: 1.4286 mcg
  4. CREON [Concomitant]
     Indication: PANCREATIC DISORDER
     Dosage: 75000 U
  5. BETALOC [Concomitant]
     Dosage: 150 mg
  6. LANOXIN PG [Concomitant]
     Indication: PALPITATIONS
     Dosage: 62.5 mg
  7. LANOXIN PG [Concomitant]
     Indication: CARDIAC FIBRILLATION
  8. MACUVISION [Concomitant]
     Indication: MACULAR DEGENERATION
  9. OMEGA 3 [Concomitant]
     Indication: ARTHRITIS
  10. CRAMPEZE [Concomitant]
     Indication: MUSCLE SPASMS
  11. ACIASTA [Concomitant]
     Indication: OSTEOPOROSIS
  12. CALCIUM [Concomitant]
     Indication: OSTEOPOROSIS

REACTIONS (6)
  - Ankle fracture [Not Recovered/Not Resolved]
  - Dyspnoea [Unknown]
  - Blood pressure fluctuation [Unknown]
  - Somnolence [Unknown]
  - Joint swelling [Not Recovered/Not Resolved]
  - Arthralgia [Unknown]
